FAERS Safety Report 7522429 (Version 3)
Quarter: 2012Q4

REPORT INFORMATION
  Report Type: Report from Study
  Country: FR (occurrence: FR)
  Receive Date: 20100803
  Receipt Date: 20121003
  Transmission Date: 20130627
  Serious: Yes (Hospitalization)
  Sender: FDA-Public Use
  Company Number: PHHO2010FR10973

PATIENT
  Age: 48 Year
  Sex: Female
  Weight: 165 kg

DRUGS (3)
  1. CERTICAN [Suspect]
     Indication: RENAL TRANSPLANT
     Dosage: 3 mg, QD
     Route: 048
     Dates: start: 20100618
  2. NEORAL [Suspect]
     Indication: RENAL TRANSPLANT
     Dosage: 125 mg, BID
     Route: 048
     Dates: start: 20100301, end: 20100625
  3. MYFORTIC [Concomitant]
     Indication: RENAL TRANSPLANT
     Dosage: 360 mg, BID
     Route: 048
     Dates: start: 20100301

REACTIONS (5)
  - Acidosis [Recovered/Resolved]
  - Hypokalaemia [Recovered/Resolved]
  - Dehydration [Recovered/Resolved]
  - Renal failure acute [Recovered/Resolved]
  - Diarrhoea infectious [Recovered/Resolved]
